FAERS Safety Report 16482752 (Version 3)
Quarter: 2019Q3

REPORT INFORMATION
  Report Type: Spontaneous
  Country: US (occurrence: US)
  Receive Date: 20190627
  Receipt Date: 20190801
  Transmission Date: 20191004
  Serious: Yes (Hospitalization, Other)
  Sender: FDA-Public Use
  Company Number: PHEH2019US026455

PATIENT
  Age: 5 Month
  Sex: Female

DRUGS (1)
  1. AVXS-101 [Suspect]
     Active Substance: ONASEMNOGENE ABEPARVOVEC
     Indication: SPINAL MUSCULAR ATROPHY
     Dosage: UNK UNK, ONCE/SINGLE (1.1 X 10 TO THE 14TH VECTOR GENOME PER MG)
     Route: 042
     Dates: start: 20190607, end: 20190607

REACTIONS (6)
  - Bradycardia [Recovered/Resolved]
  - Heart rate abnormal [Recovered/Resolved]
  - Cardiac arrest [Recovered/Resolved]
  - Secretion discharge [Recovered/Resolved]
  - Concomitant disease aggravated [Recovered/Resolved]
  - Breath sounds absent [Recovered/Resolved]

NARRATIVE: CASE EVENT DATE: 20190617
